FAERS Safety Report 7379585-1 (Version None)
Quarter: 2011Q1

REPORT INFORMATION
  Report Type: 
  Country: None (occurrence: None)
  Receive Date: 20110329
  Receipt Date: 20080815
  Transmission Date: 20110831
  Serious: No
  Sender: FDA-Public Use
  Company Number: 2008BI021832

PATIENT
  Age: 35 Year
  Sex: Female

DRUGS (3)
  1. TYSABRI [Suspect]
     Indication: MULTIPLE SCLEROSIS
     Route: 042
     Dates: start: 20080417
  2. XANAX [Concomitant]
     Indication: MENTAL DISORDER
     Dates: start: 19920101
  3. VALIUM [Concomitant]
     Indication: PANIC ATTACK
     Dates: start: 19960101

REACTIONS (1)
  - HYPERSENSITIVITY [None]
